FAERS Safety Report 6531018-0 (Version None)
Quarter: 2010Q1

REPORT INFORMATION
  Report Type: 
  Country: None (occurrence: None)
  Receive Date: 20100108
  Receipt Date: 20091106
  Transmission Date: 20100710
  Serious: No
  Sender: FDA-Public Use
  Company Number: A0807419A

PATIENT
  Age: 62 Year
  Sex: Female

DRUGS (14)
  1. LOVAZA [Suspect]
     Dosage: 2CAP TWICE PER DAY
     Route: 048
     Dates: start: 20060101
  2. AVALIDE [Concomitant]
  3. TEKTURNA [Concomitant]
  4. FLUTICASONE PROPIONATE [Concomitant]
     Route: 045
  5. GEMFIBROZIL [Concomitant]
  6. LEVOTHYROXINE SODIUM [Concomitant]
  7. METFORMIN HYDROCHLORIDE [Concomitant]
  8. ESTRADIOL [Concomitant]
  9. LORAZEPAM [Concomitant]
  10. PROCHLORPERAZINE [Concomitant]
  11. ASPIRIN [Concomitant]
  12. CALCIUM + D [Concomitant]
  13. VITAMIN D [Concomitant]
  14. EXCEDRIN (MIGRAINE) [Concomitant]

REACTIONS (2)
  - NAUSEA [None]
  - PRODUCT QUALITY ISSUE [None]
